FAERS Safety Report 4323780-2 (Version None)
Quarter: 2004Q1

REPORT INFORMATION
  Report Type: 
  Country: None (occurrence: None)
  Receive Date: 20040323
  Receipt Date: 20040312
  Transmission Date: 20041129
  Serious: Yes (Hospitalization)
  Sender: FDA-Public Use
  Company Number: IE-JNJFOC-20040302950

PATIENT
  Sex: Female

DRUGS (4)
  1. REMICADE [Suspect]
     Indication: CROHN'S DISEASE
     Dosage: INTRAVENOUS
     Route: 042
  2. IMURAN [Concomitant]
  3. PREDNISOLONE [Concomitant]
  4. ASACOLON (MESALAZINE) [Concomitant]

REACTIONS (2)
  - MEDIASTINAL BIOPSY ABNORMAL [None]
  - TUBERCULOSIS [None]
